FAERS Safety Report 8363043-1 (Version None)
Quarter: 2012Q2

REPORT INFORMATION
  Report Type: 
  Country: None (occurrence: None)
  Receive Date: 20120516
  Receipt Date: 20120509
  Transmission Date: 20120825
  Serious: Yes (Hospitalization, Disabling)
  Sender: FDA-Public Use
  Company Number: US-ASTELLAS-2012US004204

PATIENT
  Sex: Female

DRUGS (1)
  1. PROGRAF [Suspect]
     Indication: LIVER TRANSPLANT
     Dosage: 1 MG, UNKNOWN/D
     Route: 065
     Dates: start: 20111125

REACTIONS (5)
  - CEREBROVASCULAR ACCIDENT [None]
  - PYREXIA [None]
  - MENTAL STATUS CHANGES [None]
  - PNEUMONIA [None]
  - CONVULSION [None]
